FAERS Safety Report 6119575-X (Version None)
Quarter: 2009Q1

REPORT INFORMATION
  Report Type: 
  Country: None (occurrence: None)
  Receive Date: 20090316
  Receipt Date: 20090310
  Transmission Date: 20090719
  Serious: Yes (Other)
  Sender: FDA-Public Use
  Company Number: B0564962A

PATIENT
  Age: 64 Year
  Sex: Female

DRUGS (7)
  1. LANOXIN [Suspect]
     Indication: ATRIAL FIBRILLATION
     Dosage: .25MG PER DAY
     Route: 042
     Dates: start: 20090204, end: 20090205
  2. ATENOLOL [Concomitant]
     Dosage: 100MG PER DAY
     Route: 048
     Dates: start: 20090203, end: 20090216
  3. COUMADIN [Concomitant]
  4. TRIATEC [Concomitant]
     Route: 048
     Dates: start: 20090203, end: 20090216
  5. EUTIROX [Concomitant]
     Route: 048
     Dates: start: 20090203, end: 20090216
  6. SELEPARINA [Concomitant]
     Route: 058
     Dates: start: 20090203, end: 20090216
  7. LASIX [Concomitant]
     Route: 042
     Dates: start: 20090204, end: 20090205

REACTIONS (3)
  - AGITATION [None]
  - CONFUSIONAL STATE [None]
  - OVERDOSE [None]
